FAERS Safety Report 7772000-5 (Version None)
Quarter: 2011Q3

REPORT INFORMATION
  Report Type: 
  Country: None (occurrence: None)
  Receive Date: 20110922
  Receipt Date: 20110629
  Transmission Date: 20111222
  Serious: No
  Sender: FDA-Public Use
  Company Number: US-ASTRAZENECA-2011SE39132

PATIENT
  Sex: Female

DRUGS (1)
  1. SEROQUEL XR [Suspect]
     Indication: FIBROMYALGIA
     Route: 048

REACTIONS (4)
  - NAUSEA [None]
  - HEADACHE [None]
  - OEDEMA PERIPHERAL [None]
  - OFF LABEL USE [None]
